FAERS Safety Report 6264489-8 (Version None)
Quarter: 2009Q3

REPORT INFORMATION
  Report Type: 
  Country: None (occurrence: None)
  Receive Date: 20090710
  Receipt Date: 20090706
  Transmission Date: 20100115
  Serious: Yes (Hospitalization, Other)
  Sender: FDA-Public Use
  Company Number: US-ABBOTT-09P-163-0583493-00

PATIENT
  Sex: Female
  Weight: 54.48 kg

DRUGS (6)
  1. HUMIRA [Suspect]
     Indication: RHEUMATOID ARTHRITIS
     Route: 058
     Dates: start: 20060606
  2. HUMIRA [Suspect]
  3. CLONIDINE [Concomitant]
     Indication: HYPERTENSION
     Route: 048
  4. LISINOPRIL [Concomitant]
     Indication: HYPERTENSION
     Route: 048
  5. ATENOL/HCTZ [Concomitant]
     Indication: BLOOD CHOLESTEROL INCREASED
     Dosage: 50/25 MG
     Route: 048
  6. BLOOD TRANSFUSIONS [Concomitant]
     Indication: DRUG USE FOR UNKNOWN INDICATION
     Dates: start: 20090501

REACTIONS (6)
  - ARTHROPATHY [None]
  - DRUG INEFFECTIVE [None]
  - FALL [None]
  - INCORRECT STORAGE OF DRUG [None]
  - PAIN [None]
  - RHEUMATOID ARTHRITIS [None]
